FAERS Safety Report 6525819-2 (Version None)
Quarter: 2010Q1

REPORT INFORMATION
  Report Type: 
  Country: None (occurrence: None)
  Receive Date: 20100104
  Receipt Date: 20091221
  Transmission Date: 20100710
  Serious: Yes (Hospitalization, Other)
  Sender: FDA-Public Use
  Company Number: B0598407A

PATIENT
  Sex: Male

DRUGS (19)
  1. ARIXTRA [Suspect]
     Dosage: 7.5MG IN THE MORNING
     Route: 058
     Dates: start: 20090617, end: 20090619
  2. APROVEL [Concomitant]
     Indication: DRUG USE FOR UNKNOWN INDICATION
     Dosage: 300MG PER DAY
     Route: 048
     Dates: start: 20090615
  3. ZOLPIDEM TARTRATE [Concomitant]
     Indication: DRUG USE FOR UNKNOWN INDICATION
     Dosage: 10MG AS REQUIRED
     Route: 048
     Dates: start: 20090619
  4. SODIUM BICARBONATE [Concomitant]
     Indication: DRUG USE FOR UNKNOWN INDICATION
     Route: 065
     Dates: start: 20090619
  5. FUNGIZONE [Concomitant]
     Indication: DRUG USE FOR UNKNOWN INDICATION
     Dosage: 100MG THREE TIMES PER DAY
     Route: 048
     Dates: start: 20090615
  6. SPECIAFOLDINE [Concomitant]
     Indication: DRUG USE FOR UNKNOWN INDICATION
     Route: 065
  7. DIFFU K [Concomitant]
     Indication: DRUG USE FOR UNKNOWN INDICATION
     Route: 065
  8. DAFALGAN [Concomitant]
     Dosage: 1G FOUR TIMES PER DAY
     Route: 048
     Dates: start: 20090615
  9. OFLOCET [Concomitant]
     Dosage: 200MG TWICE PER DAY
     Route: 048
     Dates: start: 20090615, end: 20090620
  10. SEROPRAM [Concomitant]
     Dosage: 40MG IN THE MORNING
     Route: 048
     Dates: start: 20090619
  11. SMECTA [Concomitant]
     Dosage: 1SAC THREE TIMES PER DAY
     Route: 048
     Dates: start: 20090615
  12. LYRICA [Concomitant]
     Dosage: 25MG TWICE PER DAY
     Route: 048
     Dates: start: 20090615
  13. ALPRAZOLAM [Concomitant]
     Dosage: 1MG PER DAY
     Route: 048
     Dates: start: 20090615, end: 20090619
  14. IMOVANE [Concomitant]
     Dosage: 7.5MG AT NIGHT
     Route: 048
     Dates: start: 20090615
  15. TOPALGIC ( FRANCE ) [Concomitant]
     Dosage: 80MG THREE TIMES PER DAY
     Route: 048
     Dates: start: 20090615
  16. XATRAL [Concomitant]
     Dosage: 10MG AT NIGHT
     Route: 048
     Dates: start: 20090615
  17. ORAMORPH SR [Concomitant]
     Route: 048
     Dates: start: 20090619
  18. SOLIAN [Concomitant]
     Dosage: 50MG TWICE PER DAY
     Route: 048
     Dates: start: 20090619
  19. TRIFLUCAN [Concomitant]
     Dosage: 50MG AT NIGHT
     Route: 048
     Dates: start: 20090619

REACTIONS (11)
  - ANAEMIA [None]
  - FAECES DISCOLOURED [None]
  - GENERAL PHYSICAL HEALTH DETERIORATION [None]
  - HYPOTENSION [None]
  - INFLAMMATION [None]
  - LEUKOCYTOSIS [None]
  - MELAENA [None]
  - PALLOR [None]
  - PLATELET COUNT INCREASED [None]
  - SERUM FERRITIN INCREASED [None]
  - SOMNOLENCE [None]
